FAERS Safety Report 9900123 (Version 2)
Quarter: 2014Q2

REPORT INFORMATION
  Report Type: Spontaneous
  Country: JP (occurrence: JP)
  Receive Date: 20140214
  Receipt Date: 20140416
  Transmission Date: 20141212
  Serious: Yes (Other)
  Sender: FDA-Public Use
  Company Number: JP-PFIZER INC-2014041328

PATIENT
  Age: 72 Year
  Sex: Female
  Weight: 61 kg

DRUGS (18)
  1. CAMPTO [Suspect]
     Indication: PANCREATIC CARCINOMA
     Dosage: 150.9 MG/M2, 1X/DAY
     Route: 041
     Dates: start: 20140204, end: 20140204
  2. ELPLAT [Suspect]
     Indication: PANCREATIC CARCINOMA
     Dosage: 85.5 MG/M2, 1X/DAY
     Route: 041
     Dates: start: 20140204, end: 20140204
  3. 5-FU [Suspect]
     Indication: PANCREATIC CARCINOMA
     Dosage: 2414.4 MG/M2, CYCLIC, D1-2
     Route: 041
     Dates: start: 20140204, end: 20140204
  4. LEVOFOLINATE [Concomitant]
     Indication: PANCREATIC CARCINOMA
     Dosage: 201.2 MG/M2, 1X/DAY
     Route: 042
     Dates: start: 20140204, end: 20140204
  5. DECADRON [Concomitant]
     Dosage: UNK
     Dates: start: 20140204, end: 20140204
  6. ALOXI [Concomitant]
     Dosage: UNK
     Dates: start: 20140204, end: 20140204
  7. DECADRON [Concomitant]
     Dosage: UNK
     Dates: start: 20140205, end: 20140206
  8. MAGLAX [Concomitant]
     Dosage: UNK
     Dates: start: 20140131
  9. BLOPRESS [Concomitant]
     Dosage: UNK
     Dates: start: 20140131
  10. ZETIA [Concomitant]
     Dosage: UNK
     Dates: start: 20140131
  11. AZELNIDIPINE [Concomitant]
     Dosage: UNK
     Dates: start: 20140131
  12. GOODMIN [Concomitant]
     Dosage: UNK
     Dates: start: 20140131
  13. TRYPTANOL [Concomitant]
     Dosage: UNK
     Dates: start: 20140131
  14. LOXONIN [Concomitant]
     Dosage: UNK
     Dates: start: 20140131
  15. NEXIUM [Concomitant]
     Dosage: UNK
     Dates: start: 20140131
  16. SOLITA-T 3G [Concomitant]
     Dosage: UNK
     Dates: start: 20140206
  17. VEEN 3 G [Concomitant]
     Dosage: UNK
     Dates: start: 20140206
  18. AMINOLEBAN [Concomitant]
     Dosage: UNK
     Dates: start: 20140206

REACTIONS (1)
  - Hyperammonaemia [Recovered/Resolved]
